FAERS Safety Report 8940625 (Version 2)
Quarter: 2012Q4

REPORT INFORMATION
  Report Type: 
  Country: IE (occurrence: IE)
  Receive Date: 20121203
  Receipt Date: 20121217
  Transmission Date: 20130627
  Serious: No
  Sender: FDA-Public Use
  Company Number: IE-JNJFOC-20121113023

PATIENT
  Sex: Male

DRUGS (1)
  1. XEPLION [Suspect]
     Indication: PRODUCT USED FOR UNKNOWN INDICATION
     Route: 030

REACTIONS (1)
  - Drug ineffective [Unknown]
